FAERS Safety Report 19784382 (Version 2)
Quarter: 2021Q3

REPORT INFORMATION
  Report Type: Spontaneous
  Country: JP (occurrence: JP)
  Receive Date: 20210903
  Receipt Date: 20210920
  Transmission Date: 20211014
  Serious: Yes (Hospitalization, Other)
  Sender: FDA-Public Use
  Company Number: JP-TEVA-2021-JP-1937921

PATIENT
  Age: 7 Decade

DRUGS (1)
  1. AZILECT [Suspect]
     Active Substance: RASAGILINE MESYLATE
     Indication: PARKINSON^S DISEASE
     Dosage: 1 MILLIGRAM DAILY;
     Route: 048

REACTIONS (3)
  - Radial nerve palsy [Recovered/Resolved]
  - Blister [Unknown]
  - Fall [Recovered/Resolved]

NARRATIVE: CASE EVENT DATE: 202106
